FAERS Safety Report 20077397 (Version 1)
Quarter: 2021Q4

REPORT INFORMATION
  Report Type: Report from Study
  Country: CA (occurrence: CA)
  Receive Date: 20211116
  Receipt Date: 20211116
  Transmission Date: 20220303
  Serious: Yes (Other)
  Sender: FDA-Public Use
  Company Number: CA-BAUSCH-BL-2021-007179

PATIENT
  Age: 64 Year
  Sex: Male

DRUGS (9)
  1. SILIQ [Suspect]
     Active Substance: BRODALUMAB
     Indication: Psoriasis
     Dosage: 210MG/ 1.5 ML, TAKEN BOTH WEEK 0: 25/FEB/2021, WEEK 1 AND 2 DOSE IN /MAR/2021
     Route: 058
     Dates: start: 20210225, end: 202103
  2. SILIQ [Suspect]
     Active Substance: BRODALUMAB
     Dosage: Q 2 WEEKS
     Route: 058
     Dates: start: 2021, end: 2021
  3. LYRICA [Concomitant]
     Active Substance: PREGABALIN
     Indication: Pain
  4. NEXIUM [Concomitant]
     Active Substance: ESOMEPRAZOLE MAGNESIUM
     Indication: Gastrooesophageal reflux disease
  5. ATENOLOL [Concomitant]
     Active Substance: ATENOLOL
     Indication: Product used for unknown indication
  6. PERINDOPRIL [Concomitant]
     Active Substance: PERINDOPRIL
     Indication: Product used for unknown indication
  7. LEFLUNOMIDE [Concomitant]
     Active Substance: LEFLUNOMIDE
     Indication: Psoriatic arthropathy
  8. COVID-19 VACCINE [Concomitant]
     Indication: Product used for unknown indication
     Dates: start: 20210711, end: 20210711
  9. METHOTREXATE [Concomitant]
     Active Substance: METHOTREXATE
     Indication: Psoriasis

REACTIONS (8)
  - Erythrodermic psoriasis [Recovered/Resolved]
  - Arthralgia [Recovered/Resolved]
  - Erythema [Recovered/Resolved]
  - Headache [Recovered/Resolved]
  - Extra dose administered [Unknown]
  - Inappropriate schedule of product administration [Unknown]
  - Off label use [Unknown]
  - Patient dissatisfaction with treatment [Unknown]

NARRATIVE: CASE EVENT DATE: 20210101
